FAERS Safety Report 5597627-0 (Version None)
Quarter: 2008Q1

REPORT INFORMATION
  Report Type: 
  Country: None (occurrence: None)
  Receive Date: 20080121
  Receipt Date: 20080108
  Transmission Date: 20080703
  Serious: Yes (Other)
  Sender: FDA-Public Use
  Company Number: US-ELI_LILLY_AND_COMPANY-US200709004900

PATIENT
  Sex: Female
  Weight: 108.84 kg

DRUGS (1)
  1. OLANZAPINE [Suspect]
     Dates: start: 20010101

REACTIONS (2)
  - OBESITY [None]
  - WEIGHT INCREASED [None]
